FAERS Safety Report 9328721 (Version 1)
Quarter: 2013Q2

REPORT INFORMATION
  Report Type: Spontaneous
  Country: US (occurrence: US)
  Receive Date: 20130604
  Receipt Date: 20130604
  Transmission Date: 20140414
  Serious: No
  Sender: FDA-Public Use
  Company Number: US-SANOFI-AVENTIS-2013SA010632

PATIENT
  Age: 57 Year
  Sex: Female
  Weight: 104.32 kg

DRUGS (4)
  1. LANTUS [Suspect]
     Dosage: DOSE:40 UNIT(S)
     Dates: start: 201206, end: 201211
  2. INSULIN DETEMIR [Concomitant]
  3. NPH INSULIN [Concomitant]
  4. HUMALOG [Concomitant]

REACTIONS (1)
  - Headache [Recovered/Resolved]
